FAERS Safety Report 8833060 (Version 2)
Quarter: 2012Q4

REPORT INFORMATION
  Report Type: 
  Country: US (occurrence: US)
  Receive Date: 20121010
  Receipt Date: 20121025
  Transmission Date: 20130627
  Serious: Yes (Life-Threatening, Hospitalization, Disabling)
  Sender: FDA-Public Use
  Company Number: US-009507513-1210USA002727

PATIENT
  Age: 70 Year
  Sex: Female

DRUGS (2)
  1. TEMODAR [Suspect]
     Indication: BRAIN NEOPLASM
     Dosage: 75 mg/m2, UNK
     Route: 048
     Dates: end: 2012
  2. KEPPRA [Concomitant]

REACTIONS (4)
  - Febrile neutropenia [Recovering/Resolving]
  - Aplastic anaemia [Recovering/Resolving]
  - Pancytopenia [Recovering/Resolving]
  - Thrombocytopenia [Recovering/Resolving]
